FAERS Safety Report 7809409-7 (Version None)
Quarter: 2011Q4

REPORT INFORMATION
  Report Type: 
  Country: None (occurrence: None)
  Receive Date: 20111012
  Receipt Date: 20111003
  Transmission Date: 20120403
  Serious: Yes (Other)
  Sender: FDA-Public Use
  Company Number: ES-ALLERGAN-1113244US

PATIENT
  Age: 21 Year
  Sex: Female

DRUGS (4)
  1. PRED FORTEA? COLIRIO EN SUSPENSI??N [Suspect]
     Indication: EYE INFECTION TOXOPLASMAL
     Dosage: UNK
     Route: 047
     Dates: start: 20110831, end: 20110916
  2. DARAPRIM 25 MG COMPRIMIDOS , 30 COMPRIMIDOS [Suspect]
     Indication: EYE INFECTION TOXOPLASMAL
     Route: 048
     Dates: start: 20110831, end: 20110916
  3. ZAMENE 30 MG COMPRIMIDOS , 10 COMPRIMIDOS [Suspect]
     Indication: EYE INFECTION TOXOPLASMAL
     Route: 048
     Dates: start: 20110831, end: 20110916
  4. SULFADIAZINE [Suspect]
     Indication: EYE INFECTION TOXOPLASMAL
     Route: 048
     Dates: start: 20110831, end: 20110916

REACTIONS (1)
  - GRAND MAL CONVULSION [None]
